FAERS Safety Report 6580593-9 (Version None)
Quarter: 2010Q1

REPORT INFORMATION
  Report Type: 
  Country: None (occurrence: None)
  Receive Date: 20100212
  Receipt Date: 20100205
  Transmission Date: 20100710
  Serious: Yes (Other)
  Sender: FDA-Public Use
  Company Number: US-BAXTER-2010BH000151

PATIENT
  Age: 45 Year
  Sex: Female

DRUGS (3)
  1. STERILE WATER [Suspect]
     Indication: CONTINUOUS POSITIVE AIRWAY PRESSURE
     Route: 055
     Dates: start: 20091123, end: 20091124
  2. ASTHMA MEDICATION [Concomitant]
     Indication: ASTHMA
     Route: 065
  3. PREDNISONE [Concomitant]
     Indication: ASTHMA
     Route: 048
     Dates: start: 20091101

REACTIONS (4)
  - ANAPHYLACTIC REACTION [None]
  - DYSTONIA [None]
  - HYPERSENSITIVITY [None]
  - THROAT TIGHTNESS [None]
